FAERS Safety Report 10922861 (Version 1)
Quarter: 2015Q1

REPORT INFORMATION
  Report Type: Spontaneous
  Country: US (occurrence: US)
  Receive Date: 20150317
  Receipt Date: 20150317
  Transmission Date: 20150721
  Serious: Yes (Other)
  Sender: FDA-Public Use
  Company Number: US-BAUSCH-BL-2015-009553

PATIENT
  Age: 56 Year
  Sex: Female

DRUGS (1)
  1. ACETIC ACID. [Suspect]
     Active Substance: ACETIC ACID
     Indication: COLPOSCOPY

REACTIONS (2)
  - Drug administration error [Unknown]
  - Chemical injury [Recovering/Resolving]
